FAERS Safety Report 4302633-X (Version None)
Quarter: 2004Q1

REPORT INFORMATION
  Report Type: 
  Country: None (occurrence: None)
  Receive Date: 20040217
  Receipt Date: 20030521
  Transmission Date: 20041129
  Serious: Yes (Other)
  Sender: FDA-Public Use
  Company Number: US-SHR-03-006564

PATIENT
  Sex: Female

DRUGS (2)
  1. CLIMARA [Suspect]
  2. PREMARIN [Suspect]

REACTIONS (1)
  - CEREBROVASCULAR ACCIDENT [None]
